FAERS Safety Report 17149944 (Version 1)
Quarter: 2019Q4

REPORT INFORMATION
  Report Type: Report from Study
  Country: CZ (occurrence: CZ)
  Receive Date: 20191213
  Receipt Date: 20191213
  Transmission Date: 20200122
  Serious: Yes (Hospitalization, Other)
  Sender: FDA-Public Use
  Company Number: CZ-ACCORD-098782

PATIENT
  Age: 43 Year
  Sex: Male
  Weight: 165 kg

DRUGS (3)
  1. TACROLIMUS. [Suspect]
     Active Substance: TACROLIMUS
     Indication: RENAL TRANSPLANT
     Dosage: MODIFIED-RELEASE CAPSULE, HARD
     Route: 065
     Dates: start: 20150615, end: 20170323
  2. MYCOPHENOLATE MOFETIL/MYCOPHENOLATE SODIUM/MYCOPHENOLIC ACID [Concomitant]
     Active Substance: MYCOPHENOLIC ACID
     Indication: IMMUNOSUPPRESSION
     Dosage: FORMULATION UNKNOWN
     Route: 065
     Dates: start: 20130212
  3. PREDNISONE. [Concomitant]
     Active Substance: PREDNISONE
     Indication: IMMUNOSUPPRESSION
     Dosage: FORMULATION UNKNOWN
     Route: 065
     Dates: start: 20081016

REACTIONS (2)
  - Complications of transplanted kidney [Not Recovered/Not Resolved]
  - Transplant dysfunction [Not Recovered/Not Resolved]

NARRATIVE: CASE EVENT DATE: 20170323
